FAERS Safety Report 19815269 (Version 1)
Quarter: 2021Q3

REPORT INFORMATION
  Report Type: Spontaneous
  Country: ES (occurrence: ES)
  Receive Date: 20210910
  Receipt Date: 20210910
  Transmission Date: 20211014
  Serious: Yes (Hospitalization)
  Sender: FDA-Public Use
  Company Number: ES-MYLANLABS-2021M1060032

PATIENT
  Age: 44 Year
  Sex: Male

DRUGS (4)
  1. PALIPERIDONA [Interacting]
     Active Substance: PALIPERIDONE
     Indication: SCHIZOPHRENIA
     Dosage: UNK, QD, 1?0?0
     Route: 048
     Dates: start: 20210313, end: 20210326
  2. TRANXILIUM [Concomitant]
     Active Substance: CLORAZEPATE DIPOTASSIUM
     Dosage: UNK, 1?1?2
     Route: 048
     Dates: start: 20210313, end: 20210326
  3. SERTRALINE [Suspect]
     Active Substance: SERTRALINE HYDROCHLORIDE
     Indication: PRODUCT USED FOR UNKNOWN INDICATION
     Dosage: UNK, QD,  1?0?0
     Route: 048
     Dates: start: 20210313
  4. QUETIAPINE. [Interacting]
     Active Substance: QUETIAPINE
     Indication: SCHIZOPHRENIA
     Dosage: UNK, QD, 0?0?1
     Route: 048
     Dates: start: 20210313

REACTIONS (2)
  - Pulmonary embolism [Recovered/Resolved]
  - Drug interaction [Unknown]

NARRATIVE: CASE EVENT DATE: 20210326
